FAERS Safety Report 8482469-9 (Version None)
Quarter: 2012Q3

REPORT INFORMATION
  Report Type: 
  Country: None (occurrence: None)
  Receive Date: 20120702
  Receipt Date: 20120627
  Transmission Date: 20120928
  Serious: Yes (Death)
  Sender: FDA-Public Use
  Company Number: US-INCYTE CORPORATION-2012IN001148

PATIENT
  Sex: Female

DRUGS (2)
  1. HYDROXYUREA [Concomitant]
  2. JAKAFI [Suspect]
     Indication: MYELOFIBROSIS
     Dosage: 20 MG, BID
     Route: 048

REACTIONS (1)
  - DEATH [None]
